FAERS Safety Report 7798475-3 (Version None)
Quarter: 2011Q4

REPORT INFORMATION
  Report Type: 
  Country: None (occurrence: None)
  Receive Date: 20111005
  Receipt Date: 20111001
  Transmission Date: 20120403
  Serious: Yes (Hospitalization)
  Sender: FDA-Public Use
  Company Number: CA-ABBOTT-10P-028-0671706-00

PATIENT
  Sex: Female
  Weight: 51.302 kg

DRUGS (15)
  1. CELEXA [Concomitant]
     Indication: DEPRESSION
  2. CLONAZEPAM [Concomitant]
     Indication: DEPRESSION
  3. VALTREX [Concomitant]
     Indication: ORAL HERPES
     Route: 048
     Dates: start: 20030101
  4. CLONAZEPAM [Concomitant]
     Indication: SLEEP DISORDER THERAPY
     Route: 048
     Dates: start: 20060101
  5. MELOXICAM [Concomitant]
     Indication: PRODUCT USED FOR UNKNOWN INDICATION
     Route: 048
  6. TYLENOL-500 [Concomitant]
     Indication: PRODUCT USED FOR UNKNOWN INDICATION
     Route: 048
  7. CYMBALTA [Concomitant]
     Indication: DEPRESSION
     Route: 048
     Dates: start: 20110201
  8. AMLODIPINE [Concomitant]
     Indication: BLOOD PRESSURE
     Route: 048
  9. NEXIUM [Concomitant]
     Indication: PRODUCT USED FOR UNKNOWN INDICATION
     Route: 048
  10. ESTRADERM [Concomitant]
     Indication: MENOPAUSE
     Route: 061
     Dates: start: 20110901
  11. MAXALT [Concomitant]
     Indication: MIGRAINE
     Route: 048
     Dates: start: 20080101
  12. HUMIRA [Suspect]
     Indication: ANKYLOSING SPONDYLITIS
     Route: 058
     Dates: start: 20081016, end: 20110801
  13. CELEXA [Concomitant]
     Indication: ANXIETY
     Route: 048
  14. COVERSIL [Concomitant]
     Indication: BLOOD PRESSURE
     Route: 048
     Dates: start: 20080101
  15. GRAVOL TAB [Concomitant]
     Indication: MIGRAINE
     Route: 054
     Dates: start: 20080101

REACTIONS (7)
  - VOMITING [None]
  - DYSPNOEA [None]
  - BLOOD ELECTROLYTES DECREASED [None]
  - ASTHENIA [None]
  - SKIN PAPILLOMA [None]
  - MIGRAINE [None]
  - HYPERTENSION [None]
